FAERS Safety Report 6417594-7 (Version None)
Quarter: 2009Q4

REPORT INFORMATION
  Report Type: 
  Country: None (occurrence: None)
  Receive Date: 20091023
  Receipt Date: 20091013
  Transmission Date: 20100525
  Serious: Yes (Life-Threatening)
  Sender: FDA-Public Use
  Company Number: ADR37642009

PATIENT
  Age: 53 Year
  Sex: Female

DRUGS (2)
  1. SIMVASTATIN [Suspect]
     Dosage: 40 MG, 1/1 DAYS
  2. KILOVANCE [Concomitant]

REACTIONS (2)
  - ANAPHYLACTIC REACTION [None]
  - WHEEZING [None]
